FAERS Safety Report 5811607-9 (Version None)
Quarter: 2008Q3

REPORT INFORMATION
  Report Type: 
  Country: None (occurrence: None)
  Receive Date: 20080716
  Receipt Date: 20080710
  Transmission Date: 20090109
  Serious: Yes (Hospitalization)
  Sender: FDA-Public Use
  Company Number: JP-ASTRAZENECA-2008AP05416

PATIENT
  Age: 60 Year
  Sex: Male

DRUGS (3)
  1. DIPRIVAN [Suspect]
     Indication: SEDATION
     Dosage: DOSE UNKNOWN
     Route: 042
  2. MIDAZOLAM HCL [Concomitant]
     Indication: SEDATION
     Dosage: DOSE UNKNOWN
     Route: 042
  3. BUTORPHANOL TARTRATE [Concomitant]
     Indication: SEDATION
     Dosage: DOSE UNKNOWN
     Route: 042

REACTIONS (1)
  - DRUG WITHDRAWAL SYNDROME [None]
